FAERS Safety Report 7251052-5 (Version None)
Quarter: 2011Q1

REPORT INFORMATION
  Report Type: 
  Country: None (occurrence: None)
  Receive Date: 20110128
  Receipt Date: 20100914
  Transmission Date: 20110831
  Serious: Yes (Other)
  Sender: FDA-Public Use
  Company Number: US-BAYER-201025779NA

PATIENT
  Sex: Female
  Weight: 44.444 kg

DRUGS (11)
  1. YAZ [Suspect]
     Indication: PREMENSTRUAL SYNDROME
     Dosage: UNK
     Route: 048
     Dates: start: 20060101
  2. UNCODEABLE ^UNCLASSIFIABLE^ [Concomitant]
     Dosage: UNK
     Dates: start: 20060101
  3. YAZ [Suspect]
     Dosage: UNK
     Dates: start: 20080410
  4. TRIMETHOPRIM [Concomitant]
     Dosage: 160 NOT APPLICABLE, UNK
     Dates: start: 20080410
  5. DEPAKOTE [Concomitant]
     Indication: MIGRAINE PROPHYLAXIS
     Dosage: UNK
     Dates: start: 20080512
  6. OCELLA [Suspect]
     Indication: PRODUCT USED FOR UNKNOWN INDICATION
     Route: 048
  7. NSAID'S [Concomitant]
  8. UNCODEABLE ^UNCLASSIFIABLE^ [Concomitant]
     Dosage: 800 NOT APPL., UNK
     Dates: start: 20080410
  9. ALBUTEROL INHALER [Concomitant]
     Dosage: UNK
     Dates: start: 20050101
  10. YAZ [Suspect]
     Dosage: UNK
     Dates: start: 20070101
  11. YASMIN [Suspect]
     Indication: PRODUCT USED FOR UNKNOWN INDICATION
     Route: 048

REACTIONS (3)
  - APHASIA [None]
  - CEREBROVASCULAR ACCIDENT [None]
  - TRANSIENT ISCHAEMIC ATTACK [None]
